FAERS Safety Report 5118997-3 (Version None)
Quarter: 2006Q3

REPORT INFORMATION
  Report Type: 
  Country: None (occurrence: None)
  Receive Date: 20060927
  Receipt Date: 20060919
  Transmission Date: 20061208
  Serious: Yes (Disabling)
  Sender: FDA-Public Use
  Company Number: GXKR2006GB05777

PATIENT
  Age: 64 Year
  Sex: Female

DRUGS (4)
  1. OMEPRAZOLE [Suspect]
     Indication: HIATUS HERNIA
     Dosage: 10 MG, QD, ORAL
     Route: 048
  2. ATORVASTATIN CALCIUM [Suspect]
     Indication: BLOOD CHOLESTEROL INCREASED
     Dosage: 10 MG, QD, ORAL
     Route: 048
     Dates: start: 20051001, end: 20060201
  3. COD-LIVER OIL (COD-LIVER OIL) [Concomitant]
  4. PRAVASTATIN [Concomitant]

REACTIONS (6)
  - CONFUSIONAL STATE [None]
  - DISTURBANCE IN ATTENTION [None]
  - EMOTIONAL DISORDER [None]
  - INSOMNIA [None]
  - RESTLESSNESS [None]
  - SUICIDAL IDEATION [None]
